FAERS Safety Report 14757301 (Version 1)
Quarter: 2018Q2

REPORT INFORMATION
  Report Type: Spontaneous
  Country: US (occurrence: US)
  Receive Date: 20180413
  Receipt Date: 20180413
  Transmission Date: 20180711
  Serious: No
  Sender: FDA-Public Use
  Company Number: US-PFIZER INC-2018150038

PATIENT
  Age: 76 Year
  Sex: Female
  Weight: 108.8 kg

DRUGS (3)
  1. VANCOMYCIN HCL [Suspect]
     Active Substance: VANCOMYCIN HYDROCHLORIDE
     Dosage: UNK (1)
     Route: 042
  2. VANCOMYCIN HCL [Suspect]
     Active Substance: VANCOMYCIN HYDROCHLORIDE
     Dosage: UNK (750 WAS THE LAST DOSE)
     Route: 042
     Dates: end: 20180405
  3. VANCOMYCIN HCL [Suspect]
     Active Substance: VANCOMYCIN HYDROCHLORIDE
     Indication: STAPHYLOCOCCAL INFECTION
     Dosage: UNK (1.5)
     Route: 042

REACTIONS (4)
  - Arthralgia [Unknown]
  - Dry mouth [Not Recovered/Not Resolved]
  - Parosmia [Recovered/Resolved]
  - Pain in extremity [Unknown]
